FAERS Safety Report 5710397-8 (Version None)
Quarter: 2008Q2

REPORT INFORMATION
  Report Type: 
  Country: None (occurrence: None)
  Receive Date: 20080418
  Receipt Date: 20080411
  Transmission Date: 20081010
  Serious: No
  Sender: FDA-Public Use
  Company Number: US-MERCK-0804USA00410

PATIENT
  Age: 84 Year
  Sex: Male
  Weight: 68 kg

DRUGS (3)
  1. FOSAMAX [Suspect]
     Indication: OSTEOPOROSIS
     Route: 048
     Dates: start: 20061201, end: 20080301
  2. CALCIUM CITRATE AND VITAMIN D (UNSPECIFIED) [Concomitant]
     Route: 065
  3. TAPAZOLE [Concomitant]
     Route: 065

REACTIONS (5)
  - ARTHRALGIA [None]
  - BONE PAIN [None]
  - MOBILITY DECREASED [None]
  - MUSCULAR WEAKNESS [None]
  - MYALGIA [None]
